FAERS Safety Report 24556310 (Version 1)
Quarter: 2024Q4

REPORT INFORMATION
  Report Type: Spontaneous
  Country: CA (occurrence: CA)
  Receive Date: 20241028
  Receipt Date: 20241028
  Transmission Date: 20250115
  Serious: Yes (Other)
  Sender: BAUSCH AND LOMB
  Company Number: CA-BAUSCH-BL-2024-015628

PATIENT
  Age: 56 Year
  Sex: Female

DRUGS (5)
  1. ALBUTEROL SULFATE [Suspect]
     Active Substance: ALBUTEROL SULFATE
     Indication: Product used for unknown indication
     Route: 065
  2. BUDESONIDE\FORMOTEROL FUMARATE [Suspect]
     Active Substance: BUDESONIDE\FORMOTEROL FUMARATE
     Indication: Product used for unknown indication
     Route: 065
  3. NUCALA [Suspect]
     Active Substance: MEPOLIZUMAB
     Indication: Asthma
     Dosage: 1 EVERY 4 WEEKS
     Route: 058
  4. NUCALA [Suspect]
     Active Substance: MEPOLIZUMAB
     Dosage: 1 EVERY 1 MONTH
     Route: 042
  5. TERBUTALINE SULFATE [Suspect]
     Active Substance: TERBUTALINE SULFATE
     Indication: Product used for unknown indication
     Route: 065

REACTIONS (10)
  - Asthma [Unknown]
  - Dyspnoea [Unknown]
  - Full blood count abnormal [Unknown]
  - Loss of personal independence in daily activities [Unknown]
  - Sleep disorder due to a general medical condition [Unknown]
  - Wheezing [Unknown]
  - Influenza [Unknown]
  - Nasopharyngitis [Unknown]
  - Drug hypersensitivity [Unknown]
  - Therapeutic product effect incomplete [Unknown]
